FAERS Safety Report 6607698-8 (Version None)
Quarter: 2010Q1

REPORT INFORMATION
  Report Type: 
  Country: None (occurrence: None)
  Receive Date: 20100301
  Receipt Date: 20100218
  Transmission Date: 20100710
  Serious: Yes (Other)
  Sender: FDA-Public Use
  Company Number: CHPA2010US03519

PATIENT
  Age: 80 Year
  Sex: Male
  Weight: 90.703 kg

DRUGS (1)
  1. BENEFIBER FIBER SUPP VIT B + FOLIC ACID [Suspect]
     Dosage: 2 TSP, TID
     Route: 048

REACTIONS (1)
  - CEREBROVASCULAR ACCIDENT [None]
